FAERS Safety Report 4362744-X (Version None)
Quarter: 2004Q2

REPORT INFORMATION
  Report Type: 
  Country: None (occurrence: None)
  Receive Date: 20040517
  Receipt Date: 20040401
  Transmission Date: 20050107
  Serious: No
  Sender: FDA-Public Use
  Company Number: S04-USA-02037-01

PATIENT
  Age: 86 Year
  Sex: Female

DRUGS (10)
  1. NAMENDA [Suspect]
     Indication: DEMENTIA ALZHEIMER'S TYPE
     Dosage: 10 MG BID PO
     Route: 048
     Dates: start: 20040214, end: 20040318
  2. NAMENDA [Suspect]
     Indication: DEMENTIA ALZHEIMER'S TYPE
     Dosage: 10 MG QD PO
     Route: 048
     Dates: start: 20040319
  3. NAMENDA [Suspect]
     Indication: DEMENTIA ALZHEIMER'S TYPE
     Dosage: 5 MG QD PO
     Route: 048
     Dates: start: 20040124, end: 20040130
  4. NAMENDA [Suspect]
     Indication: DEMENTIA ALZHEIMER'S TYPE
     Dosage: 5 MG BID PO
     Route: 048
     Dates: start: 20040131, end: 20040206
  5. NAMENDA [Suspect]
     Indication: DEMENTIA ALZHEIMER'S TYPE
     Dosage: 10 MG QAM PO
     Route: 048
     Dates: start: 20040207, end: 20040213
  6. NAMENDA [Suspect]
     Indication: DEMENTIA ALZHEIMER'S TYPE
     Dosage: 5 MG QHS PO
     Route: 048
     Dates: start: 20040207, end: 20040213
  7. DILANTIN [Suspect]
     Dosage: 200 MG QOD
     Dates: end: 20040318
  8. DILANTIN [Suspect]
     Dosage: 300 MG QOD
     Dates: end: 20040317
  9. DILANTIN [Suspect]
     Dosage: 200 MG QOD
     Dates: start: 20040319
  10. DILANTIN [Suspect]
     Dosage: 300 MG QOD
     Dates: start: 20040320

REACTIONS (2)
  - ANTICONVULSANT DRUG LEVEL INCREASED [None]
  - DRUG INTERACTION [None]
